FAERS Safety Report 11225655 (Version 1)
Quarter: 2015Q2

REPORT INFORMATION
  Report Type: Spontaneous
  Country: US (occurrence: None)
  Receive Date: 20150626
  Receipt Date: 20150626
  Transmission Date: 20150821
  Serious: No
  Sender: FDA-Public Use
  Company Number: None

PATIENT
  Age: 25 Year
  Sex: Female
  Weight: 108.86 kg

DRUGS (3)
  1. EFFEXOR [Suspect]
     Active Substance: VENLAFAXINE HYDROCHLORIDE
     Indication: PAIN
     Route: 048
     Dates: start: 20150604, end: 20150621
  2. NEURONTON [Concomitant]
  3. LODINE [Concomitant]
     Active Substance: ETODOLAC

REACTIONS (9)
  - Malaise [None]
  - Dizziness [None]
  - Impaired work ability [None]
  - Vomiting [None]
  - Insomnia [None]
  - Suicidal ideation [None]
  - Diarrhoea [None]
  - Decreased appetite [None]
  - Hypophagia [None]

NARRATIVE: CASE EVENT DATE: 20150621
